FAERS Safety Report 9883606 (Version 1)
Quarter: 2014Q1

REPORT INFORMATION
  Report Type: Spontaneous
  Country: ES (occurrence: ES)
  Receive Date: 20140210
  Receipt Date: 20140210
  Transmission Date: 20141002
  Serious: Yes (Other)
  Sender: FDA-Public Use
  Company Number: ES-BRISTOL-MYERS SQUIBB COMPANY-20122859

PATIENT
  Age: 59 Year
  Sex: Female
  Weight: 60 kg

DRUGS (3)
  1. KOMBOGLYZE [Suspect]
     Indication: DIABETES MELLITUS
     Dosage: 1 DF: 2.5/850 UNITS NOS
     Route: 048
     Dates: start: 20140103, end: 20140118
  2. RAMIPRIL [Concomitant]
     Indication: HYPERTENSION
  3. LANSOPRAZOLE [Concomitant]
     Indication: PROPHYLAXIS
     Dosage: TRADE NAME:MONOLITUMN FLAS 15 MG

REACTIONS (6)
  - Nausea [Recovered/Resolved]
  - Abdominal distension [Recovered/Resolved]
  - Insomnia [Recovered/Resolved]
  - Fatigue [Recovered/Resolved]
  - Salivary hypersecretion [Recovered/Resolved]
  - Drug intolerance [Recovered/Resolved]
